FAERS Safety Report 6829062-9 (Version None)
Quarter: 2010Q3

REPORT INFORMATION
  Report Type: 
  Country: None (occurrence: None)
  Receive Date: 20100709
  Receipt Date: 20070227
  Transmission Date: 20110219
  Serious: No
  Sender: FDA-Public Use
  Company Number: US-PFIZER INC-2007015741

PATIENT
  Sex: Male

DRUGS (4)
  1. CHANTIX [Suspect]
     Dates: start: 20070101
  2. ATENOLOL [Concomitant]
  3. VYTORIN [Concomitant]
  4. ACETYLSALICYLIC ACID [Concomitant]

REACTIONS (3)
  - GINGIVAL BLEEDING [None]
  - GINGIVAL PAIN [None]
  - ORAL PAIN [None]
